FAERS Safety Report 24973659 (Version 1)
Quarter: 2025Q1

REPORT INFORMATION
  Report Type: Report from Study
  Country: US (occurrence: US)
  Receive Date: 20250217
  Receipt Date: 20250217
  Transmission Date: 20250409
  Serious: Yes (Hospitalization)
  Sender: ABBVIE
  Company Number: US-ABBVIE-6131368

PATIENT
  Sex: Female

DRUGS (1)
  1. CREON [Suspect]
     Active Substance: PANCRELIPASE AMYLASE\PANCRELIPASE LIPASE\PANCRELIPASE PROTEASE
     Indication: Product used for unknown indication
     Route: 048
     Dates: start: 2024

REACTIONS (5)
  - Cardiac failure [Recovering/Resolving]
  - Pneumonia [Recovered/Resolved]
  - Off label use [Recovered/Resolved]
  - Pancreatic disorder [Unknown]
  - Weight decreased [Unknown]
